FAERS Safety Report 24980525 (Version 2)
Quarter: 2025Q2

REPORT INFORMATION
  Report Type: Spontaneous
  Country: JP (occurrence: JP)
  Receive Date: 20250218
  Receipt Date: 20250401
  Transmission Date: 20250717
  Serious: Yes (Other)
  Sender: ROCHE
  Company Number: JP-ROCHE-10000209728

PATIENT
  Age: 74 Year
  Sex: Male

DRUGS (9)
  1. XOFLUZA [Suspect]
     Active Substance: BALOXAVIR MARBOXIL
     Indication: Influenza
     Dosage: XOFLUZA TABLETS 20MG
     Route: 048
     Dates: start: 20241225, end: 20241225
  2. LIPIDIL(FENOFIBRATE) [Concomitant]
     Indication: Hypertriglyceridaemia
     Route: 048
  3. METGLUCO [Concomitant]
     Active Substance: METFORMIN HYDROCHLORIDE
     Indication: Type 2 diabetes mellitus
     Route: 048
  4. LUSEOGLIFLOZIN [Concomitant]
     Active Substance: LUSEOGLIFLOZIN
     Indication: Type 2 diabetes mellitus
     Route: 048
  5. JANUVIA [Concomitant]
     Active Substance: SITAGLIPTIN PHOSPHATE
     Indication: Type 2 diabetes mellitus
     Route: 048
  6. ICOSAPENT ETHYL [Concomitant]
     Active Substance: ICOSAPENT ETHYL
     Indication: Hypertriglyceridaemia
     Route: 048
  7. HERBALS [Concomitant]
     Active Substance: HERBALS
     Indication: Influenza
     Route: 048
     Dates: start: 20241225, end: 20241226
  8. HERBALS [Concomitant]
     Active Substance: HERBALS
     Indication: Influenza
     Route: 048
     Dates: start: 20241226
  9. CARBOCYSTEINE [Concomitant]
     Active Substance: CARBOCYSTEINE
     Indication: Influenza
     Route: 048
     Dates: start: 20241225, end: 20250101

REACTIONS (1)
  - Abdominal wall haematoma [Recovered/Resolved]

NARRATIVE: CASE EVENT DATE: 20250103
